FAERS Safety Report 6858267-6 (Version None)
Quarter: 2010Q3

REPORT INFORMATION
  Report Type: 
  Country: None (occurrence: None)
  Receive Date: 20100719
  Receipt Date: 20080308
  Transmission Date: 20110219
  Serious: Yes (Other)
  Sender: FDA-Public Use
  Company Number: US-PFIZER INC-2008012160

PATIENT
  Sex: Female
  Weight: 52.272 kg

DRUGS (4)
  1. CHANTIX [Suspect]
     Indication: SMOKING CESSATION THERAPY
     Dates: start: 20080108, end: 20080215
  2. CHANTIX [Suspect]
     Indication: TOBACCO ABUSE
  3. ATIVAN [Concomitant]
  4. ALL OTHER THERAPEUTIC PRODUCTS [Concomitant]

REACTIONS (7)
  - ANGER [None]
  - BLOOD PRESSURE INCREASED [None]
  - CRYING [None]
  - DISTURBANCE IN ATTENTION [None]
  - MENTAL STATUS CHANGES [None]
  - SUICIDAL IDEATION [None]
  - WEIGHT INCREASED [None]
